FAERS Safety Report 7072905-7 (Version None)
Quarter: 2010Q4

REPORT INFORMATION
  Report Type: 
  Country: None (occurrence: None)
  Receive Date: 20101029
  Receipt Date: 20100329
  Transmission Date: 20110411
  Serious: No
  Sender: FDA-Public Use
  Company Number: A0852392A

PATIENT
  Age: 78 Year
  Sex: Male

DRUGS (5)
  1. ADVAIR DISKUS 100/50 [Suspect]
     Indication: CHRONIC OBSTRUCTIVE PULMONARY DISEASE
     Dosage: 1PUFF TWICE PER DAY
     Route: 055
     Dates: start: 20100210, end: 20100225
  2. LIPITOR [Concomitant]
  3. ENALAPRIL MALEATE [Concomitant]
  4. LASIX [Concomitant]
  5. COMBIVENT NEBULIZER [Concomitant]

REACTIONS (4)
  - FATIGUE [None]
  - NONSPECIFIC REACTION [None]
  - RASH MORBILLIFORM [None]
  - SKIN EXFOLIATION [None]
